FAERS Safety Report 10965169 (Version 2)
Quarter: 2015Q2

REPORT INFORMATION
  Report Type: Spontaneous
  Country: IT (occurrence: IT)
  Receive Date: 20150330
  Receipt Date: 20150424
  Transmission Date: 20150821
  Serious: Yes (Other)
  Sender: FDA-Public Use
  Company Number: IT-ROCHE-1557327

PATIENT
  Age: 4 Year
  Sex: Male
  Weight: 22 kg

DRUGS (4)
  1. ZARONTIN [Concomitant]
     Active Substance: ETHOSUXIMIDE
     Dosage: ^250 MG/ML SYRUP^ 1 200 ML BOTTLE
     Route: 048
     Dates: start: 20150101, end: 20150127
  2. RIVOTRIL [Suspect]
     Active Substance: CLONAZEPAM
     Indication: SEIZURE
     Dosage: ^2.5 MG/ML ORAL DROPS, SOLUTION^
     Route: 048
     Dates: start: 20150128, end: 20150128
  3. DEPAKIN [Concomitant]
     Active Substance: VALPROATE SODIUM
  4. FRISIUM [Concomitant]
     Active Substance: CLOBAZAM
     Dosage: ^10 MG HARD CAPSULES^ 30 CAPSULES
     Route: 048
     Dates: start: 20150101, end: 20150127

REACTIONS (5)
  - Eye movement disorder [Recovering/Resolving]
  - Muscle rigidity [Recovering/Resolving]
  - Sleep disorder [Recovering/Resolving]
  - Sopor [Recovering/Resolving]
  - Apnoeic attack [Recovering/Resolving]

NARRATIVE: CASE EVENT DATE: 20150128
